FAERS Safety Report 9108761 (Version 1)
Quarter: 2013Q1

REPORT INFORMATION
  Report Type: Spontaneous
  Country: US (occurrence: US)
  Receive Date: 20130222
  Receipt Date: 20130222
  Transmission Date: 20140127
  Serious: Yes (Other)
  Sender: FDA-Public Use
  Company Number: CHPA2013US003215

PATIENT
  Age: 81 Year
  Sex: Male

DRUGS (2)
  1. PERDIEM [Suspect]
     Indication: CONSTIPATION
     Dosage: 2 PILLS IN THE EVENING
     Route: 048
     Dates: start: 201302
  2. PLAVIX [Concomitant]
     Dosage: 75 MG, UNK

REACTIONS (2)
  - Eye haemorrhage [Recovered/Resolved]
  - Periorbital contusion [Recovered/Resolved]
